FAERS Safety Report 23560037 (Version 6)
Quarter: 2024Q3

REPORT INFORMATION
  Report Type: Spontaneous
  Country: ES (occurrence: ES)
  Receive Date: 20240223
  Receipt Date: 20240708
  Transmission Date: 20241017
  Serious: Yes (Death, Life-Threatening, Hospitalization, Other)
  Sender: MYLAN
  Company Number: ES-HALEON-ESCH2024EME006670

PATIENT
  Age: 54 Year
  Sex: Female

DRUGS (9)
  1. ACETAMINOPHEN [Suspect]
     Active Substance: ACETAMINOPHEN
     Indication: Product used for unknown indication
     Dosage: EMPTY BLISTERS
     Route: 065
  2. DEXKETOPROFEN TROMETAMOL [Suspect]
     Active Substance: DEXKETOPROFEN TROMETAMOL
     Indication: Product used for unknown indication
     Dosage: EMPTY BLISTERS
     Route: 065
  3. LORMETAZEPAM [Suspect]
     Active Substance: LORMETAZEPAM
     Indication: Product used for unknown indication
     Dosage: EMPTY BLISTERS
     Route: 065
  4. CLORAZEPIC ACID [Suspect]
     Active Substance: CLORAZEPIC ACID
     Indication: Product used for unknown indication
     Dosage: EMPTY BLISTERS
     Route: 065
  5. AMOXICILLIN [Suspect]
     Active Substance: AMOXICILLIN
     Indication: Product used for unknown indication
     Dosage: EMPTY BLISTERS
     Route: 065
  6. DICLOFENAC SODIUM [Suspect]
     Active Substance: DICLOFENAC\DICLOFENAC SODIUM
     Indication: Product used for unknown indication
     Dosage: EMPTY BLISTERS
     Route: 065
  7. VITAMIN K [Suspect]
     Active Substance: PHYTONADIONE
     Indication: Hepatic failure
     Dosage: UNK
     Route: 065
  8. SODIUM BICARBONATE [Suspect]
     Active Substance: SODIUM BICARBONATE
     Indication: Metabolic acidosis
     Dosage: UNK
     Route: 065
  9. INSULIN NOS [Suspect]
     Active Substance: INSULIN NOS
     Indication: Pancreatic failure
     Dosage: UNK
     Route: 065

REACTIONS (21)
  - Death [Fatal]
  - Toxicity to various agents [Fatal]
  - Pancreatic failure [Fatal]
  - Acute kidney injury [Fatal]
  - Shock [Fatal]
  - Metabolic acidosis [Fatal]
  - Hyperglycaemia [Fatal]
  - Neutrophil toxic granulation present [Fatal]
  - Hepatic perfusion disorder [Fatal]
  - Acute hepatic failure [Fatal]
  - Coagulopathy [Fatal]
  - Tachypnoea [Fatal]
  - Dehydration [Fatal]
  - Haemodynamic instability [Fatal]
  - Hypoperfusion [Fatal]
  - Renal failure [Fatal]
  - White blood cell disorder [Fatal]
  - Cardiovascular disorder [Fatal]
  - Drug ineffective [Fatal]
  - Liver injury [Fatal]
  - General physical health deterioration [Fatal]
